FAERS Safety Report 6385802-7 (Version None)
Quarter: 2009Q3

REPORT INFORMATION
  Report Type: 
  Country: None (occurrence: None)
  Receive Date: 20090929
  Receipt Date: 20090430
  Transmission Date: 20100115
  Serious: Yes (Hospitalization, Other)
  Sender: FDA-Public Use
  Company Number: LMI-2009-00099

PATIENT
  Age: 58 Year
  Sex: Female
  Weight: 104.3273 kg

DRUGS (7)
  1. DEFINITY [Suspect]
     Indication: CARDIAC STRESS TEST
     Dosage: .8 ML OF DEFINITY DILUTED WITH 29 ML OF SALINE (15 ML), INTRAVENOUS
     Route: 042
     Dates: start: 20090427, end: 20090427
  2. DEFINITY [Suspect]
     Indication: CHEST PAIN
     Dosage: .8 ML OF DEFINITY DILUTED WITH 29 ML OF SALINE (15 ML), INTRAVENOUS
     Route: 042
     Dates: start: 20090427, end: 20090427
  3. LISINOPRIL [Concomitant]
  4. HYDROCHLOROTHIAZIDE [Concomitant]
  5. ACTIVA (DICLOFENAC SODIUM) [Concomitant]
  6. CIPRO (CYPROHEPTADINE HYDROCHLORIDE) [Concomitant]
  7. NITROGLYCERIN [Concomitant]

REACTIONS (5)
  - FEELING HOT [None]
  - HYPERSENSITIVITY [None]
  - LOSS OF CONSCIOUSNESS [None]
  - NAUSEA [None]
  - TACHYCARDIA [None]
